FAERS Safety Report 8520515-4 (Version None)
Quarter: 2012Q3

REPORT INFORMATION
  Report Type: 
  Country: None (occurrence: None)
  Receive Date: 20120719
  Receipt Date: 20120711
  Transmission Date: 20120928
  Serious: No
  Sender: FDA-Public Use
  Company Number: US-BAYER-2012-070040

PATIENT

DRUGS (3)
  1. ASPIRIN [Suspect]
     Indication: ANALGESIC THERAPY
     Dosage: 2 DF, UNK
     Route: 048
  2. ALEVE (CAPLET) [Suspect]
     Indication: ANALGESIC THERAPY
     Dosage: 2 DF, UNK
     Route: 048
  3. TYLENOL W/ CODEINE NO. 3 [Concomitant]
     Indication: ANALGESIC THERAPY
     Dosage: 1 DF, UNK
     Route: 048

REACTIONS (1)
  - PAIN [None]
